FAERS Safety Report 18472660 (Version 1)
Quarter: 2020Q4

REPORT INFORMATION
  Report Type: Report from Study
  Country: IT (occurrence: IT)
  Receive Date: 20201106
  Receipt Date: 20201106
  Transmission Date: 20210114
  Serious: Yes (Hospitalization)
  Sender: FDA-Public Use
  Company Number: IT-TEVA-2020-IT-1844789

PATIENT
  Age: 79 Year
  Sex: Male

DRUGS (4)
  1. NALTREXONE HYDROCHLORIDE. [Concomitant]
     Active Substance: NALTREXONE HYDROCHLORIDE
  2. ZYTIGA [Concomitant]
     Active Substance: ABIRATERONE ACETATE
  3. RAMIPRIL. [Suspect]
     Active Substance: RAMIPRIL
     Dosage: 10 MG
     Route: 048
     Dates: start: 20200101, end: 20201007
  4. ELIGARD [Concomitant]
     Active Substance: LEUPROLIDE ACETATE
     Dosage: 7.5 MG

REACTIONS (5)
  - Gait inability [Unknown]
  - Hyponatraemia [Unknown]
  - Asthenia [Unknown]
  - Malaise [Unknown]
  - Dyspnoea [Unknown]

NARRATIVE: CASE EVENT DATE: 20201007
